FAERS Safety Report 4617734-6 (Version None)
Quarter: 2005Q1

REPORT INFORMATION
  Report Type: 
  Country: None (occurrence: None)
  Receive Date: 20050324
  Receipt Date: 20050317
  Transmission Date: 20050727
  Serious: Yes (Other)
  Sender: FDA-Public Use
  Company Number: GB-ROCHE-399038

PATIENT
  Age: 61 Year
  Sex: Female

DRUGS (1)
  1. LARIAM [Suspect]
     Indication: DRUG USE FOR UNKNOWN INDICATION
     Route: 065

REACTIONS (5)
  - DERMATITIS EXFOLIATIVE [None]
  - DRY SKIN [None]
  - FEELING ABNORMAL [None]
  - VISION BLURRED [None]
  - VOMITING [None]
